FAERS Safety Report 9008117 (Version 1)
Quarter: 2013Q1

REPORT INFORMATION
  Report Type: Spontaneous
  Country: US (occurrence: US)
  Receive Date: 20130111
  Receipt Date: 20130111
  Transmission Date: 20140127
  Serious: Yes (Hospitalization, Other)
  Sender: FDA-Public Use
  Company Number: US-BAYER-2013-001632

PATIENT
  Age: 45 Year
  Sex: Female

DRUGS (8)
  1. ACETYLSALICYLIC ACID({=100 MG) [Suspect]
     Indication: IMMUNE TOLERANCE INDUCTION
     Dosage: 20 MG, ONCE
     Route: 048
  2. ACETYLSALICYLIC ACID({=100 MG) [Suspect]
     Indication: DRUG INTOLERANCE
     Dosage: 40 MG, ONCE
     Route: 048
  3. IBUPROFEN [Suspect]
     Indication: BACK PAIN
     Route: 048
  4. FLUTICASONE [Concomitant]
     Indication: ASTHMA
     Route: 055
  5. FLUTICASONE [Concomitant]
     Indication: NASAL POLYPS
     Route: 045
  6. SALMETEROL [Concomitant]
     Indication: ASTHMA
     Route: 055
  7. MONTELUKAST [Concomitant]
     Indication: ASTHMA
     Route: 048
  8. ALBUTEROL [Concomitant]
     Indication: ASTHMA
     Dosage: UNK UNK, PRN

REACTIONS (8)
  - Bronchospasm [Recovered/Resolved]
  - Urticaria [Recovered/Resolved]
  - Pancreatitis acute [Recovered/Resolved]
  - Analgesic asthma syndrome [Recovered/Resolved]
  - Pancreatitis acute [Recovered/Resolved]
  - Wheezing [Recovered/Resolved]
  - Dyspnoea [Recovered/Resolved]
  - Urticaria [Recovered/Resolved]
